FAERS Safety Report 10754496 (Version 3)
Quarter: 2015Q2

REPORT INFORMATION
  Report Type: Report from Study
  Country: DE (occurrence: DE)
  Receive Date: 20150202
  Receipt Date: 20150420
  Transmission Date: 20150821
  Serious: Yes (Hospitalization, Other)
  Sender: FDA-Public Use
  Company Number: DE-ABBVIE-15K-062-1339772-00

PATIENT
  Age: 72 Year
  Sex: Male
  Weight: 83 kg

DRUGS (13)
  1. HUMIRA [Suspect]
     Active Substance: ADALIMUMAB
     Indication: RHEUMATOID ARTHRITIS
     Dosage: THERAPY PAUSE
     Route: 058
     Dates: start: 200701, end: 20141202
  2. NOVAMINSULFON [Concomitant]
     Active Substance: METAMIZOLE
     Indication: PRODUCT USED FOR UNKNOWN INDICATION
     Dosage: 500MG/L PER 30 DROPS AS NEEDED
  3. TAMSULOSIN [Concomitant]
     Active Substance: TAMSULOSIN
     Indication: PRODUCT USED FOR UNKNOWN INDICATION
  4. NALOXONE W/TILIDINE [Concomitant]
     Indication: PRODUCT USED FOR UNKNOWN INDICATION
     Dosage: 100MG/8MG
  5. VIGANTOLETTEN [Concomitant]
     Active Substance: CHOLECALCIFEROL
     Indication: PRODUCT USED FOR UNKNOWN INDICATION
  6. CALCIUM HEXAL [Concomitant]
     Indication: PRODUCT USED FOR UNKNOWN INDICATION
  7. METEX [Concomitant]
     Active Substance: METFORMIN HYDROCHLORIDE
     Indication: RHEUMATOID ARTHRITIS
     Route: 058
  8. BISOPROLOL [Concomitant]
     Active Substance: BISOPROLOL
     Indication: PRODUCT USED FOR UNKNOWN INDICATION
  9. PREDNISOLON GALEN [Concomitant]
     Indication: PRODUCT USED FOR UNKNOWN INDICATION
  10. PANTOZOL [Concomitant]
     Active Substance: PANTOPRAZOLE SODIUM
     Indication: PRODUCT USED FOR UNKNOWN INDICATION
  11. HUMIRA [Suspect]
     Active Substance: ADALIMUMAB
     Route: 058
     Dates: start: 20150127
  12. CORIFEO [Concomitant]
     Indication: PRODUCT USED FOR UNKNOWN INDICATION
  13. IBUHEXAL [Concomitant]
     Active Substance: IBUPROFEN
     Indication: PRODUCT USED FOR UNKNOWN INDICATION

REACTIONS (10)
  - Ankle deformity [Unknown]
  - Arthrodesis [Unknown]
  - Device dislocation [Unknown]
  - Device dislocation [Recovered/Resolved]
  - Joint swelling [Unknown]
  - Ankle fracture [Unknown]
  - Hip arthroplasty [Unknown]
  - Arthrodesis [Unknown]
  - Tibia fracture [Unknown]
  - Arthralgia [Unknown]

NARRATIVE: CASE EVENT DATE: 2010
